FAERS Safety Report 4633361-9 (Version None)
Quarter: 2005Q2

REPORT INFORMATION
  Report Type: 
  Country: None (occurrence: None)
  Receive Date: 20050408
  Receipt Date: 20050324
  Transmission Date: 20051028
  Serious: Yes (Hospitalization)
  Sender: FDA-Public Use
  Company Number: 2005BI002535

PATIENT
  Age: 47 Year
  Sex: Female
  Weight: 62.5964 kg

DRUGS (6)
  1. AVONEX [Suspect]
     Indication: MULTIPLE SCLEROSIS
     Dosage: 30 UG;QW; IM
     Route: 030
     Dates: start: 20010301
  2. AVONEX [Suspect]
     Indication: MULTIPLE SCLEROSIS
     Dosage: 30 UG;QW; IM
     Route: 030
  3. VITAMIN E [Concomitant]
  4. CALCIUM W/VITAMIN D NOS [Concomitant]
  5. MULTI-VITAMIN [Concomitant]
  6. LIPITOR [Concomitant]

REACTIONS (4)
  - BALANCE DISORDER [None]
  - COORDINATION ABNORMAL [None]
  - DEHYDRATION [None]
  - HYPERPARATHYROIDISM [None]
